FAERS Safety Report 12925193 (Version 2)
Quarter: 2017Q1

REPORT INFORMATION
  Report Type: Spontaneous
  Country: US (occurrence: US)
  Receive Date: 20161108
  Receipt Date: 20170208
  Transmission Date: 20170428
  Serious: Yes (Other)
  Sender: FDA-Public Use
  Company Number: US-SA-2016SA142167

PATIENT
  Age: 68 Year
  Sex: Male

DRUGS (4)
  1. PRALUENT [Suspect]
     Active Substance: ALIROCUMAB
     Indication: TYPE V HYPERLIPIDAEMIA
     Route: 058
     Dates: start: 20160608
  2. XYZAL [Concomitant]
     Active Substance: LEVOCETIRIZINE DIHYDROCHLORIDE
  3. ALIROCUMAB PREFILLED PEN [Concomitant]
     Active Substance: ALIROCUMAB
     Dates: start: 20160608
  4. ELIQUIS [Concomitant]
     Active Substance: APIXABAN

REACTIONS (10)
  - Thyroid function test abnormal [Unknown]
  - Muscle atrophy [Unknown]
  - Vomiting [Unknown]
  - Atrial fibrillation [Unknown]
  - Product use issue [Unknown]
  - Weight decreased [Unknown]
  - Eating disorder [Unknown]
  - Infectious mononucleosis [Unknown]
  - Bedridden [Unknown]
  - Cough [Unknown]

NARRATIVE: CASE EVENT DATE: 201601
